FAERS Safety Report 21466800 (Version 1)
Quarter: 2022Q4

REPORT INFORMATION
  Report Type: Spontaneous
  Country: US (occurrence: None)
  Receive Date: 20221017
  Receipt Date: 20221017
  Transmission Date: 20230113
  Serious: Yes (Other)
  Sender: FDA-Public Use
  Company Number: None

PATIENT
  Age: 57 Year
  Sex: Female

DRUGS (5)
  1. IBUPROFEN [Suspect]
     Active Substance: IBUPROFEN
     Indication: Toothache
     Dosage: FREQUENCY : EVERY 8 HOURS;?
     Route: 048
     Dates: start: 20221014, end: 20221014
  2. IBUPROFEN [Suspect]
     Active Substance: IBUPROFEN
     Indication: Pulpitis dental
  3. IBUPROFEN [Suspect]
     Active Substance: IBUPROFEN
  4. PENICILLIN [Suspect]
     Active Substance: PENICILLIN
  5. CIPROFLOXACIN HYDROCHLORIDE [Concomitant]
     Active Substance: CIPROFLOXACIN HYDROCHLORIDE

REACTIONS (4)
  - Product dispensing error [None]
  - Product commingling [None]
  - Wrong product administered [None]
  - Pain [None]

NARRATIVE: CASE EVENT DATE: 20221014
